FAERS Safety Report 8045690-X (Version None)
Quarter: 2012Q1

REPORT INFORMATION
  Report Type: 
  Country: None (occurrence: None)
  Receive Date: 20120110
  Receipt Date: 20120103
  Transmission Date: 20120608
  Serious: Yes (Other)
  Sender: FDA-Public Use
  Company Number: AUR-APL-2012-00168

PATIENT
  Age: 31 Year
  Sex: Female
  Weight: 72.5755 kg

DRUGS (3)
  1. ZOLPIDEM [Suspect]
     Indication: INSOMNIA
     Dosage: (1 DOSAGE FORMS, 1 D), ORAL
     Route: 048
     Dates: start: 20111229, end: 20120102
  2. PROPRANOLOL [Concomitant]
  3. ZOLOFT [Concomitant]

REACTIONS (2)
  - DRUG INEFFECTIVE [None]
  - PRODUCT SUBSTITUTION ISSUE [None]
